FAERS Safety Report 7879670-1 (Version None)
Quarter: 2011Q4

REPORT INFORMATION
  Report Type: 
  Country: None (occurrence: None)
  Receive Date: 20111101
  Receipt Date: 20111021
  Transmission Date: 20120403
  Serious: Yes (Hospitalization)
  Sender: FDA-Public Use
  Company Number: IT-GLAXOSMITHKLINE-B0759411A

PATIENT
  Sex: Male

DRUGS (8)
  1. VALIUM [Concomitant]
     Route: 065
  2. ALTIAZEM [Concomitant]
     Route: 065
     Dates: start: 20110804
  3. CORDARONE [Concomitant]
     Indication: ATRIAL FIBRILLATION
     Route: 065
     Dates: start: 20110804
  4. ACYCLOVIR [Suspect]
     Indication: HERPES ZOSTER
     Dosage: 3200MG PER DAY
     Route: 048
     Dates: start: 20111014, end: 20111017
  5. LEDERFOLIN [Concomitant]
     Route: 065
  6. CALCIUM CARBONATE [Concomitant]
     Route: 065
  7. ZANTAC [Concomitant]
     Route: 065
     Dates: start: 20110401
  8. COUMADIN [Concomitant]
     Indication: ATRIAL FIBRILLATION
     Route: 065
     Dates: start: 20110810

REACTIONS (5)
  - BRADYKINESIA [None]
  - BRADYPHRENIA [None]
  - ATAXIA [None]
  - OVERDOSE [None]
  - CONFUSIONAL STATE [None]
